FAERS Safety Report 26170661 (Version 1)
Quarter: 2025Q4

REPORT INFORMATION
  Report Type: Spontaneous
  Country: GB (occurrence: GB)
  Receive Date: 20251217
  Receipt Date: 20251217
  Transmission Date: 20260118
  Serious: Yes (Other)
  Sender: ORION PHARMA
  Company Number: GB-MLMSERVICE-20251206-PI740000-00218-6

PATIENT
  Sex: Female

DRUGS (1)
  1. METHOTREXATE [Suspect]
     Active Substance: METHOTREXATE
     Indication: Rheumatoid arthritis
     Dates: start: 2004

REACTIONS (6)
  - Atypical fracture [Unknown]
  - Foot fracture [Unknown]
  - Stress fracture [Unknown]
  - Femur fracture [Unknown]
  - Pathological fracture [Unknown]
  - Bone disorder [Unknown]

NARRATIVE: CASE EVENT DATE: 20170101
